FAERS Safety Report 17058502 (Version 1)
Quarter: 2019Q4

REPORT INFORMATION
  Report Type: Spontaneous
  Country: US (occurrence: US)
  Receive Date: 20191121
  Receipt Date: 20191121
  Transmission Date: 20200122
  Serious: Yes (Hospitalization)
  Sender: FDA-Public Use
  Company Number: US-PROCTER_AND_GAMBLE-GS19121848

PATIENT
  Age: 9 Month
  Sex: Female

DRUGS (4)
  1. VICKS VAPOSTEAM [Suspect]
     Active Substance: CAMPHOR
     Indication: INFLUENZA LIKE ILLNESS
  2. VICKS VAPOPADS [Suspect]
     Active Substance: CEDAR LEAF OIL\ETHYLENE GLYCOL\EUCALYPTUS OIL\MENTHOL
     Indication: INFLUENZA LIKE ILLNESS
  3. VICKS BABYRUB SOOTHING OINTMENT (EUCALYPTUS OIL) [Suspect]
     Active Substance: EUCALYPTUS OIL
     Indication: INFLUENZA LIKE ILLNESS
     Dosage: ON CHEST AND AROUND THE NOSE
     Route: 061
  4. VICKS VAPORUB [Suspect]
     Active Substance: CAMPHOR (SYNTHETIC)\EUCALYPTUS OIL\MENTHOL
     Indication: INFLUENZA LIKE ILLNESS
     Dosage: ON CHEST AND AROUND THE NOSE
     Route: 061

REACTIONS (5)
  - Seizure [Unknown]
  - Amphetamines positive [Unknown]
  - Product administered at inappropriate site [Unknown]
  - Product administered to patient of inappropriate age [Unknown]
  - Product use in unapproved indication [Unknown]

NARRATIVE: CASE EVENT DATE: 20191108
